FAERS Safety Report 6445383-6 (Version None)
Quarter: 2009Q4

REPORT INFORMATION
  Report Type: 
  Country: None (occurrence: None)
  Receive Date: 20091118
  Receipt Date: 20091105
  Transmission Date: 20100525
  Serious: Yes (Hospitalization)
  Sender: FDA-Public Use
  Company Number: PHHY2009US48741

PATIENT
  Age: 26 Year
  Sex: Male

DRUGS (6)
  1. CARBAMAZEPINE [Suspect]
     Indication: AGGRESSION
     Route: 048
  2. TOPIRAMATE [Concomitant]
     Dosage: UNK
     Route: 048
  3. OLANZAPINE [Concomitant]
     Route: 048
  4. QUETIAPINE [Concomitant]
     Route: 048
  5. GUANFACINE HYDROCHLORIDE [Concomitant]
     Dosage: UNK
     Route: 048
  6. DESMOPRESSIN ACETATE [Concomitant]
     Dosage: UNK
     Route: 048

REACTIONS (5)
  - AGGRESSION [None]
  - AGITATION [None]
  - DRUG LEVEL DECREASED [None]
  - HYPERAMMONAEMIA [None]
  - INSOMNIA [None]
